FAERS Safety Report 15590716 (Version 2)
Quarter: 2018Q4

REPORT INFORMATION
  Report Type: Spontaneous
  Country: US (occurrence: US)
  Receive Date: 20181106
  Receipt Date: 20181113
  Transmission Date: 20190205
  Serious: No
  Sender: FDA-Public Use
  Company Number: US-MYLANLABS-2018M1057728

PATIENT
  Age: 57 Year
  Sex: Female

DRUGS (4)
  1. CLONAZEPAM TABLETS, USP [Suspect]
     Active Substance: CLONAZEPAM
     Indication: VESTIBULAR MIGRAINE
     Dosage: UNK
     Dates: start: 201806
  2. CLONAZEPAM. [Suspect]
     Active Substance: CLONAZEPAM
     Indication: VERTIGO
  3. CLONAZEPAM TABLETS, USP [Suspect]
     Active Substance: CLONAZEPAM
     Indication: VERTIGO
  4. CLONAZEPAM. [Suspect]
     Active Substance: CLONAZEPAM
     Indication: VESTIBULAR MIGRAINE
     Dosage: UNK

REACTIONS (2)
  - Rash [Unknown]
  - Off label use [None]

NARRATIVE: CASE EVENT DATE: 201806
